FAERS Safety Report 15762858 (Version 1)
Quarter: 2018Q4

REPORT INFORMATION
  Report Type: Spontaneous
  Country: US (occurrence: US)
  Receive Date: 20181226
  Receipt Date: 20181226
  Transmission Date: 20190205
  Serious: No
  Sender: FDA-Public Use
  Company Number: US-GLAXOSMITHKLINE-US2018GSK224857

PATIENT
  Age: 68 Year
  Sex: Male

DRUGS (6)
  1. ONBREZ BREEZHALER [Concomitant]
     Active Substance: INDACATEROL
     Indication: ASTHMA
  2. TRELEGY ELLIPTA [Suspect]
     Active Substance: FLUTICASONE FUROATE\UMECLIDINIUM BROMIDE\VILANTEROL TRIFENATATE
     Indication: ASTHMA
  3. FOSTAIR [Concomitant]
     Active Substance: BECLOMETHASONE\FORMOTEROL
     Indication: EMPHYSEMA
  4. TRELEGY ELLIPTA [Suspect]
     Active Substance: FLUTICASONE FUROATE\UMECLIDINIUM BROMIDE\VILANTEROL TRIFENATATE
     Indication: EMPHYSEMA
  5. FOSTAIR [Concomitant]
     Active Substance: BECLOMETHASONE\FORMOTEROL
     Indication: ASTHMA
  6. ONBREZ BREEZHALER [Concomitant]
     Active Substance: INDACATEROL
     Indication: EMPHYSEMA

REACTIONS (5)
  - Headache [Unknown]
  - Myalgia [Unknown]
  - Malaise [Unknown]
  - Nervousness [Unknown]
  - Dyspnoea [Unknown]
